FAERS Safety Report 13462437 (Version 1)
Quarter: 2017Q2

REPORT INFORMATION
  Report Type: Spontaneous
  Country: FR (occurrence: FR)
  Receive Date: 20170420
  Receipt Date: 20170420
  Transmission Date: 20170830
  Serious: Yes (Hospitalization)
  Sender: FDA-Public Use
  Company Number: FR-PFIZER INC-2017162450

PATIENT
  Age: 46 Year
  Sex: Female

DRUGS (4)
  1. LEXOMIL [Suspect]
     Active Substance: BROMAZEPAM
     Dosage: 5 TABLETS OF BROMAZEPAM 6 MG
     Route: 048
     Dates: start: 20170316, end: 20170316
  2. CITALOPRAM [Suspect]
     Active Substance: CITALOPRAM HYDROBROMIDE
     Dosage: FIVE TABLETS OF CITALOPRAM 20 MG
     Route: 048
     Dates: start: 20170316, end: 20170316
  3. THERALENE [Suspect]
     Active Substance: TRIMEPRAZINE
     Dosage: 100 TABLETS OF ALIMEMAZINE TARTRATE 5 MG
     Route: 048
     Dates: start: 20170316, end: 20170316
  4. LYRICA [Suspect]
     Active Substance: PREGABALIN
     Dosage: 29 TABLETS OF PREGABALIN 50 MG
     Route: 048
     Dates: start: 20170316, end: 20170316

REACTIONS (7)
  - Hyperreflexia [Recovered/Resolved]
  - Hypertonia [Recovered/Resolved]
  - Intentional overdose [Recovered/Resolved]
  - Somnolence [Recovered/Resolved]
  - Vomiting [Recovered/Resolved]
  - Loss of consciousness [Recovered/Resolved]
  - Toxicity to various agents [Recovered/Resolved]

NARRATIVE: CASE EVENT DATE: 20170316
